FAERS Safety Report 9279062 (Version 2)
Quarter: 2013Q2

REPORT INFORMATION
  Report Type: Report from Study
  Country: IT (occurrence: IT)
  Receive Date: 20130508
  Receipt Date: 20130514
  Transmission Date: 20140414
  Serious: Yes (Life-Threatening, Hospitalization)
  Sender: FDA-Public Use
  Company Number: IT-BRISTOL-MYERS SQUIBB COMPANY-18871095

PATIENT
  Age: 54 Year
  Sex: Male
  Weight: 69.5 kg

DRUGS (4)
  1. ALD518 [Suspect]
     Indication: STOMATITIS
     Dosage: 27NOV-27NOV2012:1 IN 3 WK:1ST DOSE (95MG)?18DEC-18DEC2012:1 IN 3 WK:2ND DOSE(ONCE)
     Route: 042
     Dates: start: 20121127, end: 20121218
  2. CISPLATIN [Suspect]
     Indication: HEAD AND NECK CANCER
     Dosage: 28NOV-29NOV2012?18DEC-19DEC2012(ONCE)?1DF:(95+95 MG)
     Route: 042
     Dates: start: 20121128, end: 20121219
  3. BLINDED: PLACEBO [Suspect]
     Indication: STOMATITIS
     Dosage: 27NOV-27NOV2012:1 IN 3 WK:1ST DOSE?18DEC-18DEC2012:1 IN 3 WK:2ND DOSE(ONCE)
     Route: 042
     Dates: start: 20121127, end: 20121218
  4. LANSOPRAZOLE [Concomitant]
     Indication: PROPHYLAXIS AGAINST GASTROINTESTINAL ULCER
     Route: 048
     Dates: start: 20121229

REACTIONS (1)
  - Pharyngeal haemorrhage [Recovered/Resolved]
